FAERS Safety Report 5379526-2 (Version None)
Quarter: 2007Q3

REPORT INFORMATION
  Report Type: 
  Country: None (occurrence: None)
  Receive Date: 20070703
  Receipt Date: 20070618
  Transmission Date: 20080115
  Serious: Yes (Disabling)
  Sender: FDA-Public Use
  Company Number: 2006000673

PATIENT
  Age: 57 Year
  Sex: Female

DRUGS (4)
  1. TARCEVA [Suspect]
     Indication: BREAST CANCER
     Dosage: 150 MG (QD), ORAL
     Route: 048
     Dates: start: 20050615, end: 20060321
  2. TARCEVA [Suspect]
     Indication: NON-SMALL CELL LUNG CANCER
     Dosage: 150 MG (QD), ORAL
     Route: 048
     Dates: start: 20050615, end: 20060321
  3. NAVELBINE [Concomitant]
  4. FEMARA [Concomitant]

REACTIONS (11)
  - BLEPHARITIS [None]
  - BLEPHAROSPASM [None]
  - DRY EYE [None]
  - DRY SKIN [None]
  - EYE PAIN [None]
  - GLARE [None]
  - HAIR COLOUR CHANGES [None]
  - MADAROSIS [None]
  - NIGHT BLINDNESS [None]
  - PHOTOPHOBIA [None]
  - RASH [None]
